FAERS Safety Report 23208550 (Version 1)
Quarter: 2023Q4

REPORT INFORMATION
  Report Type: Spontaneous
  Country: US (occurrence: US)
  Receive Date: 20231121
  Receipt Date: 20231121
  Transmission Date: 20240109
  Serious: Yes (Death)
  Sender: FDA-Public Use
  Company Number: US-ABBVIE-5505098

PATIENT
  Age: 65 Year
  Sex: Male

DRUGS (1)
  1. IMBRUVICA [Suspect]
     Active Substance: IBRUTINIB
     Indication: Product used for unknown indication
     Dosage: STRENGTH-280 MG?2 TABLET BY MOUTH ONCE DAILY
     Route: 048
     Dates: start: 20210819

REACTIONS (1)
  - Death [Fatal]

NARRATIVE: CASE EVENT DATE: 20231115
